FAERS Safety Report 18579461 (Version 1)
Quarter: 2020Q4

REPORT INFORMATION
  Report Type: Spontaneous
  Country: US (occurrence: US)
  Receive Date: 20201204
  Receipt Date: 20201204
  Transmission Date: 20210114
  Serious: No
  Sender: FDA-Public Use
  Company Number: US-ASTRAZENECA-2008BM15921

PATIENT
  Age: 49 Year
  Sex: Female

DRUGS (7)
  1. GLUCOPHAGE [Concomitant]
     Active Substance: METFORMIN HYDROCHLORIDE
     Indication: TYPE 2 DIABETES MELLITUS
     Dosage: UNK
  2. REGLAN [Concomitant]
     Active Substance: METOCLOPRAMIDE HYDROCHLORIDE
     Indication: VOMITING
     Dosage: UNK
  3. BYETTA [Suspect]
     Active Substance: EXENATIDE
     Indication: TYPE 2 DIABETES MELLITUS
     Dosage: 5 ??G, BID
     Route: 058
     Dates: start: 200611, end: 2007
  4. EXENATIDE. [Concomitant]
     Active Substance: EXENATIDE
     Dosage: 10.0UG UNKNOWN
  5. EXENATIDE. [Concomitant]
     Active Substance: EXENATIDE
     Dosage: 10.0UG UNKNOWN
  6. EXENATIDE. [Concomitant]
     Active Substance: EXENATIDE
     Dosage: 5.0UG UNKNOWN
  7. BYETTA [Suspect]
     Active Substance: EXENATIDE
     Indication: TYPE 2 DIABETES MELLITUS
     Dosage: 10 ??G, BID
     Route: 058
     Dates: start: 2007

REACTIONS (7)
  - Headache [Not Recovered/Not Resolved]
  - Dizziness [Recovered/Resolved]
  - Decreased appetite [Not Recovered/Not Resolved]
  - Gastrooesophageal reflux disease [Not Recovered/Not Resolved]
  - Dizziness postural [Not Recovered/Not Resolved]
  - Liquid product physical issue [Unknown]
  - Vomiting [Recovered/Resolved]

NARRATIVE: CASE EVENT DATE: 200611
